FAERS Safety Report 7991338-X (Version None)
Quarter: 2011Q4

REPORT INFORMATION
  Report Type: 
  Country: None (occurrence: None)
  Receive Date: 20111219
  Receipt Date: 20111210
  Transmission Date: 20120403
  Serious: Yes (Hospitalization)
  Sender: FDA-Public Use
  Company Number: US-BAYER-200924060NA

PATIENT
  Age: 25 Year
  Sex: Female
  Weight: 100 kg

DRUGS (14)
  1. PREDNISONE TAB [Concomitant]
     Indication: SYSTEMIC LUPUS ERYTHEMATOSUS
     Dosage: 20 MG (DAILY DOSE), QD, UNKNOWN
     Route: 065
     Dates: start: 20020101, end: 20090101
  2. PLAQUENIL [Concomitant]
     Indication: SYSTEMIC LUPUS ERYTHEMATOSUS
     Route: 065
     Dates: start: 20020101, end: 20090101
  3. INDOCIN [Concomitant]
     Route: 065
  4. OXYCODONE HCL [Concomitant]
     Dosage: AS NEEDED
     Route: 065
  5. YAZ [Suspect]
     Dosage: 3.0/0.03. PHARMACY RECORDS: 17-SEP-2007
     Route: 048
     Dates: start: 20080401, end: 20080621
  6. PREDNISONE TAB [Concomitant]
     Dosage: 20 MG, TID
     Dates: start: 20080616
  7. METHOTREXATE [Concomitant]
     Indication: SYSTEMIC LUPUS ERYTHEMATOSUS
     Route: 065
     Dates: start: 20080101, end: 20090101
  8. HYDROXYCHLOROQUINE SULFATE [Concomitant]
     Route: 065
  9. PERCOCET [Concomitant]
     Dosage: UNK
     Dates: start: 20080616
  10. JOLIVETTE [Concomitant]
     Dosage: PHARMACY RECORDS: REFILLED ON 27-MAR-2009
  11. NORETHINDRONE [Concomitant]
  12. AVIANE-28 [Concomitant]
     Indication: CONTRACEPTION
     Dosage: UNK
     Dates: start: 20021211, end: 20080616
  13. YASMIN [Suspect]
     Dosage: AS USED DOSE: I DF
     Route: 048
  14. LEVAQUIN [Concomitant]
     Dosage: UNK
     Dates: start: 20080616

REACTIONS (4)
  - DEEP VEIN THROMBOSIS [None]
  - PAIN IN EXTREMITY [None]
  - OEDEMA PERIPHERAL [None]
  - INTERMITTENT CLAUDICATION [None]
